FAERS Safety Report 8819586 (Version 1)
Quarter: 2012Q4

REPORT INFORMATION
  Report Type: 
  Country: US (occurrence: US)
  Receive Date: 20121001
  Receipt Date: 20121001
  Transmission Date: 20130627
  Serious: No
  Sender: FDA-Public Use
  Company Number: US-BIOGENIDEC-2012BI039384

PATIENT
  Age: 58 Year
  Sex: Male

DRUGS (1)
  1. AVONEX [Suspect]
     Indication: MULTIPLE SCLEROSIS
     Route: 030
     Dates: start: 20070315

REACTIONS (3)
  - Secondary hypogonadism [Not Recovered/Not Resolved]
  - Hypogonadism [Not Recovered/Not Resolved]
  - Blood testosterone decreased [Not Recovered/Not Resolved]
